FAERS Safety Report 7269177-7 (Version None)
Quarter: 2011Q1

REPORT INFORMATION
  Report Type: 
  Country: None (occurrence: None)
  Receive Date: 20110202
  Receipt Date: 20110131
  Transmission Date: 20110831
  Serious: Yes (Other)
  Sender: FDA-Public Use
  Company Number: US-PFIZER INC-2011022780

PATIENT
  Sex: Female

DRUGS (1)
  1. CHANTIX [Suspect]
     Dosage: UNK
     Dates: start: 20110110, end: 20110101

REACTIONS (9)
  - NAUSEA [None]
  - MALAISE [None]
  - THINKING ABNORMAL [None]
  - FATIGUE [None]
  - DIZZINESS [None]
  - FEELING ABNORMAL [None]
  - CHEST PAIN [None]
  - IRRITABILITY [None]
  - ABDOMINAL DISCOMFORT [None]
